FAERS Safety Report 9917818 (Version 2)
Quarter: 2014Q1

REPORT INFORMATION
  Report Type: Spontaneous
  Country: DE (occurrence: DE)
  Receive Date: 20140221
  Receipt Date: 20140221
  Transmission Date: 20141002
  Serious: Yes (Life-Threatening, Hospitalization)
  Sender: FDA-Public Use
  Company Number: DE-B.I. PHARMACEUTICALS,INC./RIDGEFIELD-2014-BI-06285DE

PATIENT
  Age: 85 Year
  Sex: Male
  Weight: 94 kg

DRUGS (4)
  1. PRADAXA [Suspect]
     Indication: ATRIAL FIBRILLATION
     Dosage: 220 MG
     Route: 065
     Dates: end: 201310
  2. CANDESARTAN [Concomitant]
     Dosage: 16 MG
     Route: 065
  3. PANTOPRAZOL [Concomitant]
     Dosage: 40 MG
     Route: 065
  4. TORASEMID [Concomitant]
     Dosage: 10 MG
     Route: 065

REACTIONS (4)
  - Faeces discoloured [Recovered/Resolved]
  - Haemorrhagic anaemia [Recovered/Resolved]
  - Intestinal haemorrhage [Recovered/Resolved]
  - Dyspnoea [Unknown]
